FAERS Safety Report 9842952 (Version 1)
Quarter: 2013Q4

REPORT INFORMATION
  Report Type: Spontaneous
  Country: US (occurrence: None)
  Receive Date: 20131211
  Receipt Date: 20131211
  Transmission Date: 20140711
  Serious: No
  Sender: FDA-Public Use
  Company Number: ALL1-2012-04909

PATIENT
  Sex: Male

DRUGS (3)
  1. LIALDA [Suspect]
     Indication: COLITIS ISCHAEMIC
     Dates: start: 20120912, end: 20121005
  2. LISINOPRILHCTZ (HYDROCHLOROTHIAZIDE, LISINOPRIL) [Concomitant]
  3. FENOFIBRATE (FENOFIBRATE) (FENOFIBRATE) [Concomitant]

REACTIONS (6)
  - Pyrexia [None]
  - Musculoskeletal stiffness [None]
  - Neck pain [None]
  - Malaise [None]
  - Hyperhidrosis [None]
  - Arthritis [None]
